FAERS Safety Report 6940886-X (Version None)
Quarter: 2010Q3

REPORT INFORMATION
  Report Type: 
  Country: None (occurrence: None)
  Receive Date: 20100825
  Receipt Date: 20100823
  Transmission Date: 20110219
  Serious: Yes (Death, Hospitalization)
  Sender: FDA-Public Use
  Company Number: JP-BAYER-200913998BYL

PATIENT
  Age: 76 Year
  Sex: Male

DRUGS (8)
  1. NEXAVAR [Suspect]
     Indication: HEPATIC NEOPLASM MALIGNANT
     Dosage: TOTAL DAILY DOSE: 800 MG  UNIT DOSE: 200 MG
     Route: 048
     Dates: start: 20090914, end: 20091008
  2. LIVACT [Concomitant]
     Dosage: SINCE BEFORE ADMINISTRATION
     Route: 048
  3. URSO 250 [Concomitant]
     Dosage: SINCE BEFORE ADMINISTRATION
     Route: 048
  4. MUCOSTA [Concomitant]
     Dosage: SINCE BEFORE ADMINISTRATION
     Route: 048
  5. RABEPRAZOLE SODIUM [Concomitant]
     Dosage: SINCE BEFORE ADMINISTRATION
     Route: 048
  6. BLOPRESS [Concomitant]
     Dosage: SINCE BEFORE ADMINISTRATION
     Route: 048
  7. NORVASC [Concomitant]
     Dosage: SINCE BEFORE ADMINISTRATION
     Route: 048
  8. ADALAT CC [Concomitant]
     Route: 048
     Dates: start: 20090914

REACTIONS (3)
  - HEPATIC ENCEPHALOPATHY [None]
  - HEPATIC NEOPLASM MALIGNANT [None]
  - HYPERTENSION [None]
